FAERS Safety Report 7590243-0 (Version None)
Quarter: 2011Q3

REPORT INFORMATION
  Report Type: 
  Country: None (occurrence: None)
  Receive Date: 20110705
  Receipt Date: 20110629
  Transmission Date: 20111222
  Serious: Yes (Death, Other)
  Sender: FDA-Public Use
  Company Number: DE-ACTELION-A-CH2011-50243

PATIENT
  Sex: Male
  Weight: 77 kg

DRUGS (4)
  1. SILDENAFIL CITRATE [Concomitant]
  2. TRACLEER [Suspect]
     Indication: PULMONARY ARTERIAL HYPERTENSION
     Dosage: 125 MG, BID
     Route: 048
  3. VENTAVIS [Concomitant]
     Indication: PULMONARY ARTERIAL HYPERTENSION
     Dosage: UNK
     Dates: start: 20091001
  4. TRACLEER [Suspect]
     Dosage: UNK , UNK
     Route: 048
     Dates: start: 20050101

REACTIONS (16)
  - DEATH [None]
  - CONSTIPATION [None]
  - ANAEMIA [None]
  - PRURITUS [None]
  - NEURODERMATITIS [None]
  - GENERAL PHYSICAL HEALTH DETERIORATION [None]
  - MUSCLE HAEMORRHAGE [None]
  - DYSPNOEA EXERTIONAL [None]
  - WEIGHT INCREASED [None]
  - ABSCESS DRAINAGE [None]
  - FLATULENCE [None]
  - EXERCISE TEST ABNORMAL [None]
  - ABSCESS LIMB [None]
  - VISUAL IMPAIRMENT [None]
  - OEDEMA PERIPHERAL [None]
  - HAEMATOMA EVACUATION [None]
